FAERS Safety Report 19264363 (Version 1)
Quarter: 2021Q2

REPORT INFORMATION
  Report Type: Spontaneous
  Country: US (occurrence: US)
  Receive Date: 20210514
  Receipt Date: 20210514
  Transmission Date: 20210717
  Serious: Yes (Hospitalization)
  Sender: FDA-Public Use
  Company Number: None

PATIENT
  Age: 15 Year
  Sex: Female
  Weight: 45.36 kg

DRUGS (6)
  1. ETOPOSIDE. [Concomitant]
     Active Substance: ETOPOSIDE
  2. BLEOMYCIN [Concomitant]
     Active Substance: BLEOMYCIN SULFATE
  3. CISPIATIN [Concomitant]
  4. ETOPOSIDE. [Suspect]
     Active Substance: ETOPOSIDE
     Indication: GERM CELL NEOPLASM
     Route: 042
     Dates: start: 20201127, end: 20210212
  5. CHEMOTHERAPY [Concomitant]
     Active Substance: UNSPECIFIED INGREDIENT
  6. NEULASIA [Concomitant]

REACTIONS (5)
  - Hypersensitivity [None]
  - Dyspnoea [None]
  - Chest discomfort [None]
  - Urticaria [None]
  - Flushing [None]

NARRATIVE: CASE EVENT DATE: 20201218
